FAERS Safety Report 15458377 (Version 1)
Quarter: 2018Q4

REPORT INFORMATION
  Report Type: Spontaneous
  Country: US (occurrence: US)
  Receive Date: 20181003
  Receipt Date: 20181003
  Transmission Date: 20190204
  Serious: Yes (Hospitalization)
  Sender: FDA-Public Use
  Company Number: US-ROCHE-2193229

PATIENT
  Sex: Male

DRUGS (1)
  1. XOLAIR [Suspect]
     Active Substance: OMALIZUMAB
     Indication: ASTHMA
     Dosage: EVERY 4 WEEKS; ONGOING:YES
     Route: 058
     Dates: start: 20150802

REACTIONS (3)
  - Pyrexia [Unknown]
  - Infection [Unknown]
  - White blood cell count increased [Unknown]
